FAERS Safety Report 8846469 (Version 1)
Quarter: 2012Q4

REPORT INFORMATION
  Report Type: 
  Country: BR (occurrence: BR)
  Receive Date: 20121017
  Receipt Date: 20121017
  Transmission Date: 20130627
  Serious: Yes (Other)
  Sender: FDA-Public Use
  Company Number: BR-PFIZER INC-2012257479

PATIENT
  Age: 62 Year
  Sex: Female
  Weight: 58 kg

DRUGS (3)
  1. LYRICA [Suspect]
     Indication: SPINAL DISORDER
     Dosage: 75 mg, 1 capsule 1x/day
     Route: 048
     Dates: start: 2012, end: 2012
  2. LYRICA [Suspect]
     Indication: PAIN IN EXTREMITY
     Dosage: 2 capsules of 75 mg daily
     Route: 048
  3. LYRICA [Suspect]
     Dosage: 75 mg, 2x/day

REACTIONS (2)
  - Mental impairment [Unknown]
  - Sluggishness [Recovering/Resolving]
